FAERS Safety Report 7957557-3 (Version None)
Quarter: 2011Q4

REPORT INFORMATION
  Report Type: 
  Country: None (occurrence: None)
  Receive Date: 20111205
  Receipt Date: 20111125
  Transmission Date: 20120403
  Serious: Yes (Hospitalization)
  Sender: FDA-Public Use
  Company Number: JP-GLAXOSMITHKLINE-B0760055A

PATIENT
  Sex: Female

DRUGS (4)
  1. VALTREX [Suspect]
     Indication: HERPES ZOSTER
     Dosage: 500MG PER DAY
     Route: 048
     Dates: start: 20111024, end: 20111031
  2. METHYCOBAL [Concomitant]
     Route: 048
  3. ASPIRIN [Concomitant]
     Route: 048
  4. OMEPRAZOLE [Concomitant]
     Route: 048

REACTIONS (9)
  - ENCEPHALOPATHY [None]
  - GAIT DISTURBANCE [None]
  - LACUNAR INFARCTION [None]
  - MUSCULAR WEAKNESS [None]
  - ALTERED STATE OF CONSCIOUSNESS [None]
  - COMPUTERISED TOMOGRAM ABNORMAL [None]
  - DYSARTHRIA [None]
  - DISORIENTATION [None]
  - CEREBRAL ARTERIOSCLEROSIS [None]
